FAERS Safety Report 16237177 (Version 3)
Quarter: 2019Q3

REPORT INFORMATION
  Report Type: Report from Study
  Country: None (occurrence: BR)
  Receive Date: 20190425
  Receipt Date: 20190722
  Transmission Date: 20191004
  Serious: Yes (Other)
  Sender: FDA-Public Use
  Company Number: BR-ABBVIE-18K-020-2514461-00

PATIENT
  Sex: Female
  Weight: 60 kg

DRUGS (3)
  1. ENALAPRIL MALEATE. [Concomitant]
     Active Substance: ENALAPRIL MALEATE
     Indication: HYPERTENSION
     Dates: start: 2012
  2. HUMIRA [Suspect]
     Active Substance: ADALIMUMAB
     Indication: RHEUMATOID ARTHRITIS
     Route: 058
     Dates: start: 20180921, end: 20190210
  3. CARVEDILOL. [Concomitant]
     Active Substance: CARVEDILOL
     Indication: VENOUS OCCLUSION
     Dates: start: 2012

REACTIONS (5)
  - Spinal stenosis [Unknown]
  - Musculoskeletal disorder [Unknown]
  - Fall [Unknown]
  - Peripheral swelling [Recovered/Resolved]
  - Foot deformity [Not Recovered/Not Resolved]

NARRATIVE: CASE EVENT DATE: 2018
